FAERS Safety Report 6172727-5 (Version None)
Quarter: 2009Q2

REPORT INFORMATION
  Report Type: 
  Country: None (occurrence: None)
  Receive Date: 20090430
  Receipt Date: 20090423
  Transmission Date: 20091009
  Serious: Yes (Hospitalization)
  Sender: FDA-Public Use
  Company Number: US-BIOGENIDEC-2009BI012540

PATIENT
  Age: 54 Year
  Sex: Female

DRUGS (2)
  1. AVONEX [Suspect]
     Indication: MULTIPLE SCLEROSIS
     Route: 030
     Dates: start: 20030901
  2. AVONEX [Suspect]
     Route: 030
     Dates: start: 19990701, end: 20030801

REACTIONS (2)
  - FALL [None]
  - RHEUMATOID ARTHRITIS [None]
